FAERS Safety Report 7293455-9 (Version None)
Quarter: 2011Q1

REPORT INFORMATION
  Report Type: 
  Country: None (occurrence: None)
  Receive Date: 20110215
  Receipt Date: 20110209
  Transmission Date: 20110831
  Serious: Yes (Other)
  Sender: FDA-Public Use
  Company Number: US-PFIZER INC-2011029673

PATIENT
  Sex: Male

DRUGS (1)
  1. ZYVOX [Suspect]
     Indication: PEAU D'ORANGE
     Dosage: UNK

REACTIONS (3)
  - ANGIOEDEMA [None]
  - RASH [None]
  - HYPERSENSITIVITY [None]
